FAERS Safety Report 4880556-5 (Version None)
Quarter: 2006Q1

REPORT INFORMATION
  Report Type: 
  Country: None (occurrence: None)
  Receive Date: 20060113
  Receipt Date: 20060103
  Transmission Date: 20060701
  Serious: Yes (Hospitalization, Disabling)
  Sender: FDA-Public Use
  Company Number: US-MERCK-0601USA00442

PATIENT
  Age: 56 Year
  Sex: Male
  Weight: 130 kg

DRUGS (12)
  1. VIOXX [Suspect]
     Indication: ARTHRALGIA
     Route: 048
     Dates: start: 20010901, end: 20040401
  2. COUMADIN [Concomitant]
     Route: 065
  3. DIAZEPAM [Concomitant]
     Route: 065
  4. ATENOLOL [Concomitant]
     Route: 065
  5. DOXYCYCLINE [Concomitant]
     Route: 065
  6. GLYBURIDE [Concomitant]
     Route: 065
  7. PRINIVIL [Concomitant]
     Route: 065
  8. GEMFIBROZIL [Concomitant]
     Route: 065
  9. HYDROXYZINE HYDROCHLORIDE [Concomitant]
     Route: 065
  10. AVELOX [Concomitant]
     Route: 065
  11. HYDROCODONE BITARTRATE + ACETAMINOPHEN [Concomitant]
     Route: 065
  12. GLUCOPHAGE [Concomitant]
     Route: 065

REACTIONS (5)
  - EMOTIONAL DISTRESS [None]
  - FACIAL PALSY [None]
  - MYOCARDIAL INFARCTION [None]
  - PULMONARY EMBOLISM [None]
  - THROMBOSIS [None]
